FAERS Safety Report 7323005-X (Version None)
Quarter: 2011Q1

REPORT INFORMATION
  Report Type: 
  Country: None (occurrence: None)
  Receive Date: 20110301
  Receipt Date: 20110223
  Transmission Date: 20110831
  Serious: Yes (Death, Other)
  Sender: FDA-Public Use
  Company Number: JP-BRISTOL-MYERS SQUIBB COMPANY-15192347

PATIENT
  Age: 70 Year
  Sex: Male
  Weight: 86 kg

DRUGS (11)
  1. MAGLAX [Concomitant]
     Indication: PROPHYLAXIS
     Route: 048
  2. WARFARIN [Concomitant]
     Dosage: FORM: TABLET.
     Route: 048
  3. PARIET [Concomitant]
     Indication: PROPHYLAXIS
     Dosage: FORM: TABLET.
     Route: 048
  4. METHOTREXATE [Concomitant]
     Dosage: INJ
     Route: 037
     Dates: start: 20090924
  5. LASIX [Concomitant]
     Route: 048
  6. CYLOCIDE [Concomitant]
     Dosage: INJ
     Route: 037
     Dates: start: 20090924
  7. DECADRON [Concomitant]
     Dosage: INJ
     Route: 037
     Dates: start: 20090924
  8. SPRYCEL [Suspect]
     Indication: ACUTE LYMPHOCYTIC LEUKAEMIA
     Dosage: 14SEP TO 21OCT09,17NOV09 TO 07MAY10 (140MG) INTERRUPTED ON 07MAY2010,RESTARTED ON 19MAY10.
     Route: 048
     Dates: start: 20090914
  9. ENTERONON-R [Concomitant]
     Indication: PROPHYLAXIS
     Dosage: POWDER
     Route: 048
  10. URINORM [Concomitant]
     Indication: PROPHYLAXIS
     Dosage: FORM: TABLET.
     Route: 048
  11. FORSENID [Concomitant]
     Indication: PROPHYLAXIS
     Dosage: FORM: TABLET.
     Route: 048

REACTIONS (2)
  - NEOPLASM MALIGNANT [None]
  - PLEURAL EFFUSION [None]
